FAERS Safety Report 8793448 (Version 3)
Quarter: 2012Q4

REPORT INFORMATION
  Report Type: 
  Country: IE (occurrence: IE)
  Receive Date: 20120918
  Receipt Date: 20121019
  Transmission Date: 20130627
  Serious: Yes (Other)
  Sender: FDA-Public Use
  Company Number: PHHY2012IE071185

PATIENT
  Age: 43 Year
  Sex: Female

DRUGS (10)
  1. GILENYA [Suspect]
     Indication: RELAPSING-REMITTING MULTIPLE SCLEROSIS
     Dosage: 0.5 mg, QD
     Route: 048
     Dates: start: 20120730
  2. CALCICHEW D3 [Concomitant]
  3. NEXIUM [Concomitant]
  4. SYMBICORT [Concomitant]
  5. MONTELUKAST [Concomitant]
  6. AVAMYS [Concomitant]
  7. ZIMOVANE [Concomitant]
  8. TOPAMAX [Concomitant]
     Dosage: 50 mg, BID
  9. VALIUM [Concomitant]
     Dosage: 5 mg, QD
  10. MICROLITE [Concomitant]

REACTIONS (9)
  - Hypotension [Recovering/Resolving]
  - Dizziness [Recovering/Resolving]
  - Fall [Recovering/Resolving]
  - Lower respiratory tract infection [Unknown]
  - Haemoglobin decreased [Unknown]
  - Fatigue [Not Recovered/Not Resolved]
  - Diarrhoea [Recovering/Resolving]
  - Dyspnoea [Unknown]
  - Gastrointestinal infection [Unknown]
